FAERS Safety Report 8968397 (Version 1)
Quarter: 2012Q4

REPORT INFORMATION
  Report Type: Spontaneous
  Country: GB (occurrence: None)
  Receive Date: 20121207
  Receipt Date: 20121207
  Transmission Date: 20130627
  Serious: Yes (Other)
  Sender: FDA-Public Use
  Company Number: GER/UKI/12/0026907

PATIENT
  Age: 29 Year
  Sex: Female
  Weight: 64 kg

DRUGS (5)
  1. OMEPRAZOLE (OMEPRAZOLE) [Suspect]
     Dates: start: 20081016
  2. CO-CODAMOL [Suspect]
     Dosage: 2 dosage forms, as required
     Dates: start: 20090106
  3. FOLIC ACID [Suspect]
     Dosage: 1 dosage forms, 1 in 1 D
     Dates: start: 200905
  4. HYDROXOCOBALAMIN [Suspect]
     Dosage: 3 dosage forms, 1 in 1 M
     Dates: start: 20091216
  5. PREGABALIN [Suspect]
     Dates: start: 20080815

REACTIONS (5)
  - Pelvic pain [None]
  - Infection [None]
  - Haemorrhage in pregnancy [None]
  - Forceps delivery [None]
  - Exposure during pregnancy [None]
